FAERS Safety Report 4868739-1 (Version None)
Quarter: 2005Q4

REPORT INFORMATION
  Report Type: 
  Country: None (occurrence: None)
  Receive Date: 20051223
  Receipt Date: 20051215
  Transmission Date: 20060501
  Serious: Yes (Other)
  Sender: FDA-Public Use
  Company Number: 2005168432

PATIENT
  Age: 80 Year
  Sex: Male

DRUGS (1)
  1. TAHOR (ATORVASTATIN) [Suspect]
     Indication: CORONARY ARTERY DISEASE
     Dosage: 40 MG (40 MG 1 IN 1D) ORAL
     Route: 048
     Dates: end: 20050101

REACTIONS (2)
  - DIARRHOEA [None]
  - WEIGHT DECREASED [None]
